FAERS Safety Report 10380681 (Version 1)
Quarter: 2014Q3

REPORT INFORMATION
  Report Type: Report from Study
  Country: BR (occurrence: BR)
  Receive Date: 20140813
  Receipt Date: 20140813
  Transmission Date: 20150326
  Serious: Yes (Life-Threatening)
  Sender: FDA-Public Use
  Company Number: PHHY2014BR099049

PATIENT
  Age: 11 Year
  Sex: Male

DRUGS (1)
  1. TEGRETOL [Suspect]
     Active Substance: CARBAMAZEPINE
     Indication: CONVULSION
     Dosage: UNK UKN, UNK

REACTIONS (3)
  - Convulsion [Unknown]
  - Blood sodium decreased [Unknown]
  - Coma [Unknown]
